FAERS Safety Report 19360770 (Version 1)
Quarter: 2021Q2

REPORT INFORMATION
  Report Type: Report from Study
  Country: None (occurrence: US)
  Receive Date: 20210602
  Receipt Date: 20210602
  Transmission Date: 20210717
  Serious: No
  Sender: FDA-Public Use
  Company Number: US-MDD US OPERATIONS-MDD202102-000248

PATIENT
  Age: 79 Year
  Sex: Male

DRUGS (7)
  1. MIRAPEX [Concomitant]
     Active Substance: PRAMIPEXOLE DIHYDROCHLORIDE
     Indication: PARKINSON^S DISEASE
     Dosage: NOT PROVIDED
  2. APOKYN [Suspect]
     Active Substance: APOMORPHINE HYDROCHLORIDE
     Dates: end: 2021
  3. AMANTADINE. [Concomitant]
     Active Substance: AMANTADINE HYDROCHLORIDE
     Indication: PARKINSON^S DISEASE
  4. APOKYN [Suspect]
     Active Substance: APOMORPHINE HYDROCHLORIDE
  5. APOKYN [Suspect]
     Active Substance: APOMORPHINE HYDROCHLORIDE
  6. APOKYN [Suspect]
     Active Substance: APOMORPHINE HYDROCHLORIDE
     Indication: PARKINSON^S DISEASE
     Dosage: UP TO 0.5ML PER DOSE
     Route: 058
     Dates: end: 2021
  7. APOKYN [Suspect]
     Active Substance: APOMORPHINE HYDROCHLORIDE

REACTIONS (2)
  - Drug ineffective [Unknown]
  - Freezing phenomenon [Recovered/Resolved]
